FAERS Safety Report 7805965-3 (Version None)
Quarter: 2011Q4

REPORT INFORMATION
  Report Type: 
  Country: None (occurrence: None)
  Receive Date: 20111011
  Receipt Date: 20111003
  Transmission Date: 20120403
  Serious: Yes (Hospitalization)
  Sender: FDA-Public Use
  Company Number: US-ELI_LILLY_AND_COMPANY-US201110000652

PATIENT
  Sex: Female

DRUGS (4)
  1. HUMALOG [Suspect]
     Indication: DIABETES MELLITUS
     Dosage: 10 U, TID
     Dates: start: 20080101
  2. LANTUS [Concomitant]
     Dosage: UNK
  3. METFORMIN HYDROCHLORIDE [Concomitant]
  4. HUMALOG [Suspect]
     Dosage: 10 U, TID
     Dates: start: 20110913

REACTIONS (5)
  - DEHYDRATION [None]
  - FALL [None]
  - DIZZINESS [None]
  - CEREBROVASCULAR ACCIDENT [None]
  - DIARRHOEA [None]
